FAERS Safety Report 7369434-X (Version None)
Quarter: 2011Q1

REPORT INFORMATION
  Report Type: 
  Country: None (occurrence: None)
  Receive Date: 20110321
  Receipt Date: 20110321
  Transmission Date: 20110831
  Serious: No
  Sender: FDA-Public Use
  Company Number: None

PATIENT
  Sex: Male

DRUGS (4)
  1. LEVOTHROID [Concomitant]
  2. LOVASTATIN [Concomitant]
  3. AMPYRA [Suspect]
     Indication: ATAXIA
     Dosage: 10MG Q12H ORALLY
     Route: 048
     Dates: start: 20101101
  4. MELOXICAM [Concomitant]

REACTIONS (3)
  - DISORIENTATION [None]
  - CONFUSIONAL STATE [None]
  - ATAXIA [None]
